FAERS Safety Report 7402149-8 (Version None)
Quarter: 2011Q2

REPORT INFORMATION
  Report Type: 
  Country: None (occurrence: None)
  Receive Date: 20110408
  Receipt Date: 20110324
  Transmission Date: 20111010
  Serious: Yes (Death)
  Sender: FDA-Public Use
  Company Number: JP-CELGENEUS-087-21880-11030856

PATIENT
  Sex: Male

DRUGS (7)
  1. LENADEX [Suspect]
     Indication: MULTIPLE MYELOMA
     Dosage: 40 MILLIGRAM
     Route: 048
     Dates: start: 20110113
  2. ZOMETA [Concomitant]
     Indication: MULTIPLE MYELOMA
     Dosage: 4 MILLIGRAM
     Route: 041
     Dates: start: 20110209, end: 20110209
  3. REVLIMID [Suspect]
     Indication: MULTIPLE MYELOMA
     Dosage: 25 MILLIGRAM
     Route: 048
     Dates: start: 20110113
  4. LENADEX [Suspect]
     Dosage: 40 MILLIGRAM
     Route: 048
     Dates: start: 20110310
  5. REVLIMID [Suspect]
     Dosage: 25 MILLIGRAM
     Route: 048
     Dates: start: 20110310
  6. MAGLAX [Concomitant]
     Indication: PROPHYLAXIS
     Dosage: 3.6 GRAM
     Route: 048
     Dates: start: 20110113, end: 20110209
  7. PURSENNID [Concomitant]
     Indication: PROPHYLAXIS
     Dosage: 24 MILLIGRAM
     Route: 048
     Dates: start: 20110113, end: 20110209

REACTIONS (4)
  - SEPSIS [None]
  - NEUROPATHY PERIPHERAL [None]
  - PNEUMONIA [None]
  - WEIGHT DECREASED [None]
